FAERS Safety Report 9744401 (Version 3)
Quarter: 2014Q1

REPORT INFORMATION
  Report Type: Spontaneous
  Country: US (occurrence: US)
  Receive Date: 20131210
  Receipt Date: 20140321
  Transmission Date: 20141002
  Serious: Yes (Other)
  Sender: FDA-Public Use
  Company Number: US-TEVA-449475USA

PATIENT
  Age: 42 Year
  Sex: Female
  Weight: 85.81 kg

DRUGS (3)
  1. PARAGARD 380A [Suspect]
     Indication: CONTRACEPTION
     Route: 015
     Dates: start: 20131031, end: 20131216
  2. PARAGARD 380A [Suspect]
     Route: 015
     Dates: start: 20131216
  3. LISINOPRIL [Concomitant]
     Indication: HYPERTENSION

REACTIONS (2)
  - Device dislocation [Unknown]
  - Device dislocation [Recovered/Resolved]
